FAERS Safety Report 9612432 (Version 2)
Quarter: 2014Q1

REPORT INFORMATION
  Report Type: Spontaneous
  Country: US (occurrence: US)
  Receive Date: 20131010
  Receipt Date: 20140307
  Transmission Date: 20141002
  Serious: Yes (Hospitalization, Other)
  Sender: FDA-Public Use
  Company Number: US-SA-2013SA100422

PATIENT
  Age: 50 Year
  Sex: Male

DRUGS (9)
  1. FABRAZYME [Suspect]
     Indication: FABRY^S DISEASE
     Route: 042
  2. VERAPAMIL [Concomitant]
  3. MYCOPHENOLATE MOFETIL [Concomitant]
  4. MONTELUKAST [Concomitant]
  5. CALCIUM CITRATE [Concomitant]
  6. CIALIS [Concomitant]
  7. COLCHICINE [Concomitant]
  8. CYCLOSPORIN [Concomitant]
  9. LISINOPRIL [Concomitant]

REACTIONS (6)
  - Thrombocytopenia [Recovered/Resolved]
  - Anaemia [Recovered/Resolved]
  - Oedema [Unknown]
  - Tibia fracture [Unknown]
  - Fibula fracture [Unknown]
  - Lactic acidosis [Recovered/Resolved]
